FAERS Safety Report 8069984-7 (Version None)
Quarter: 2012Q1

REPORT INFORMATION
  Report Type: 
  Country: None (occurrence: None)
  Receive Date: 20120125
  Receipt Date: 20120116
  Transmission Date: 20120608
  Serious: Yes (Death)
  Sender: FDA-Public Use
  Company Number: US-B.I. PHARMACEUTICALS,INC./RIDGEFIELD-2012-EU-00323GD

PATIENT
  Age: 40 Year
  Sex: Female

DRUGS (10)
  1. CYCLOBENZAPRINE [Suspect]
     Route: 048
  2. BUPROPION HYDROCHLORIDE [Suspect]
     Dosage: FORMULATION: EXTENDED-RELEASE PREPARATION
     Route: 048
  3. CLONAZEPAM [Suspect]
     Route: 048
  4. GABAPENTIN [Suspect]
     Route: 048
  5. CLONIDINE [Suspect]
     Route: 048
  6. DEXTROAMPHETAMINE [Suspect]
     Route: 048
  7. OMEPRAZOLE [Suspect]
     Route: 048
  8. CLOZAPINE [Suspect]
     Route: 048
  9. DESVENLAFAXINE [Suspect]
     Route: 048
  10. QUETIAPINE [Suspect]
     Route: 048

REACTIONS (1)
  - COMPLETED SUICIDE [None]
